FAERS Safety Report 9969725 (Version 1)
Quarter: 2014Q1

REPORT INFORMATION
  Report Type: Spontaneous
  Country: US (occurrence: None)
  Receive Date: 20140304
  Receipt Date: 20140304
  Transmission Date: 20141002
  Serious: Yes (Other)
  Sender: FDA-Public Use
  Company Number: None

PATIENT
  Age: 57 Year
  Sex: Female
  Weight: 60.78 kg

DRUGS (1)
  1. OSPHENA [Suspect]
     Indication: VULVOVAGINAL PAIN
     Dosage: 1 PILL, ONCE DAILY, TAKEN BY MOUTH
     Route: 048
     Dates: start: 20140130, end: 20140227

REACTIONS (3)
  - Hot flush [None]
  - Fatigue [None]
  - Pain [None]
